FAERS Safety Report 4967930-3 (Version None)
Quarter: 2006Q2

REPORT INFORMATION
  Report Type: 
  Country: None (occurrence: None)
  Receive Date: 20060404
  Receipt Date: 20060321
  Transmission Date: 20061013
  Serious: Yes (Life-Threatening, Hospitalization)
  Sender: FDA-Public Use
  Company Number: CN-2006-006427

PATIENT
  Age: 37 Year
  Sex: Female
  Weight: 65 kg

DRUGS (1)
  1. ULTRAVIST 300 [Suspect]
     Indication: COMPUTERISED TOMOGRAM
     Dosage: 100 ML, 1 DOSE, INTRAVENOUS
     Route: 042
     Dates: start: 20060317, end: 20060317

REACTIONS (8)
  - ANAPHYLACTIC SHOCK [None]
  - CHEST PAIN [None]
  - DRUG INEFFECTIVE [None]
  - EYELID OEDEMA [None]
  - FLUSHING [None]
  - HEART RATE DECREASED [None]
  - PULSE ABNORMAL [None]
  - SWELLING FACE [None]
